FAERS Safety Report 8992294 (Version 1)
Quarter: 2012Q4

REPORT INFORMATION
  Report Type: 
  Country: US (occurrence: US)
  Receive Date: 20121231
  Receipt Date: 20121231
  Transmission Date: 20130627
  Serious: No
  Sender: FDA-Public Use
  Company Number: US-009507513-1212USA011313

PATIENT
  Sex: Male

DRUGS (1)
  1. LOTRIMIN [Suspect]
     Indication: PRODUCT USED FOR UNKNOWN INDICATION
     Dosage: UNK, Unknown
     Route: 061
     Dates: start: 201211

REACTIONS (2)
  - Incorrect drug administration duration [Unknown]
  - Drug effect decreased [Unknown]
